FAERS Safety Report 10516821 (Version 1)
Quarter: 2014Q4

REPORT INFORMATION
  Report Type: Spontaneous
  Country: FR (occurrence: FR)
  Receive Date: 20141014
  Receipt Date: 20141014
  Transmission Date: 20150528
  Serious: Yes (Hospitalization)
  Sender: FDA-Public Use
  Company Number: FR-BRISTOL-MYERS SQUIBB COMPANY-21483854

PATIENT
  Age: 39 Year
  Sex: Female
  Weight: 77 kg

DRUGS (12)
  1. VICTOZA [Suspect]
     Active Substance: LIRAGLUTIDE
     Route: 058
     Dates: end: 20140510
  2. DIPROSONE [Suspect]
     Active Substance: BETAMETHASONE DIPROPIONATE
     Dates: end: 20140510
  3. COAPROVEL TABS 300MG/ 25MG [Suspect]
     Active Substance: HYDROCHLOROTHIAZIDE\IRBESARTAN
     Dosage: 1 DF=1 DF
     Route: 048
     Dates: end: 20140510
  4. GLYCEROL\PARAFFIN [Concomitant]
     Active Substance: GLYCERIN\PARAFFIN
  5. NOVONORM [Suspect]
     Active Substance: REPAGLINIDE
     Route: 048
     Dates: end: 20140510
  6. TAHOR [Suspect]
     Active Substance: ATORVASTATIN CALCIUM
     Dosage: 1 DF= 1 DF
     Route: 048
     Dates: end: 20140510
  7. LEVOTHYROX [Concomitant]
     Active Substance: LEVOTHYROXINE
  8. PHYSIOTENS [Suspect]
     Active Substance: MOXONIDINE
     Dosage: 1 DF= 1 DF UNITS NOS;0.4MGTAB
     Route: 048
     Dates: end: 20140510
  9. TEMERIT [Concomitant]
     Active Substance: NEBIVOLOL
  10. GLUCOPHAGE [Suspect]
     Active Substance: METFORMIN HYDROCHLORIDE
     Dosage: 1 DF=3 UNITS NOS
     Dates: start: 20140510, end: 20140510
  11. VICTOZA [Suspect]
     Active Substance: LIRAGLUTIDE
     Dosage: 1 DF=1.2 UNITS NOS
     Route: 058
  12. LERCAN [Concomitant]
     Active Substance: LERCANIDIPINE

REACTIONS (1)
  - Pancreatitis [Recovering/Resolving]

NARRATIVE: CASE EVENT DATE: 20140510
